FAERS Safety Report 19006545 (Version 2)
Quarter: 2021Q1

REPORT INFORMATION
  Report Type: Report from Study
  Country: KR (occurrence: KR)
  Receive Date: 20210315
  Receipt Date: 20210331
  Transmission Date: 20210420
  Serious: Yes (Hospitalization, Other)
  Sender: FDA-Public Use
  Company Number: KR-BRISTOL-MYERS SQUIBB COMPANY-BMS-2021-024174

PATIENT
  Age: 53 Year
  Sex: Female
  Weight: 51 kg

DRUGS (16)
  1. SOLONDO [Concomitant]
     Active Substance: PREDNISOLONE
     Indication: ADRENAL INSUFFICIENCY
     Dosage: 5 MILLIGRAM, QD
     Route: 048
     Dates: start: 20210227
  2. SOLONDO [Concomitant]
     Active Substance: PREDNISOLONE
     Dosage: 5 MILLIGRAM, QD
     Route: 048
     Dates: start: 20210313
  3. LYRICA [Concomitant]
     Active Substance: PREGABALIN
     Indication: PAIN
     Dosage: 75 MILLIGRAM, TID, 1 CAP
     Route: 048
     Dates: start: 20200922
  4. CELEBREX [Concomitant]
     Active Substance: CELECOXIB
     Dosage: 1 CAPSULE, BID
     Route: 048
     Dates: start: 20210304, end: 20210308
  5. LANSTON [Concomitant]
     Active Substance: LANSOPRAZOLE
     Indication: PROPHYLAXIS
     Dosage: 15 MILLIGRAM, QD, 1 CAP
     Route: 048
     Dates: start: 20210227
  6. SPIRODACTON [Concomitant]
     Dosage: 1 TAB, BID
     Route: 048
     Dates: start: 20210228, end: 20210317
  7. ERIBULIN MESILATE [Suspect]
     Active Substance: ERIBULIN
     Indication: BREAST CANCER
     Dosage: 2.0 MG (DAY 1, DAY 8 AND DAY 15 OFF)
     Route: 042
     Dates: start: 20201112, end: 20210219
  8. DUROGESIC [Concomitant]
     Active Substance: FENTANYL
     Indication: PAIN
     Dosage: 37MCG/H PATCH PRN APPLY
     Route: 065
     Dates: start: 20201106
  9. MORPHINE SULFATE. [Concomitant]
     Active Substance: MORPHINE SULFATE
     Indication: PAIN
     Dosage: 5 MILLIGRAM, PRN
     Route: 042
     Dates: start: 20210307
  10. CELEBREX [Concomitant]
     Active Substance: CELECOXIB
     Indication: PAIN
     Dosage: 200 MILLIGRAM, QD, 1 CAP
     Route: 048
     Dates: start: 20200907, end: 20210228
  11. MEGACE ORAL SUSPENSION [Concomitant]
     Indication: DECREASED APPETITE
     Dosage: 1 PKG, QD
     Route: 048
     Dates: start: 20210227, end: 20210308
  12. NIVOLUMAB [Suspect]
     Active Substance: NIVOLUMAB
     Indication: BREAST CANCER
     Dosage: 360 MILLIGRAM, Q3WK
     Route: 042
     Dates: start: 20201112, end: 20210219
  13. CALTEO [Concomitant]
     Indication: PROPHYLAXIS
     Dosage: 1 TAB, QD ((CALCIUM CITRATE 750MG/CHOLECALCIFEROL  400IU)
     Route: 048
     Dates: start: 20210208, end: 20210308
  14. SPIRODACTON [Concomitant]
     Indication: OEDEMA
     Dosage: 1 TAB, 25 MG, PRN
     Route: 048
     Dates: start: 20210118, end: 20210226
  15. SPIRODACTON [Concomitant]
     Dosage: 1 TAB, QD
     Route: 048
     Dates: start: 20210319
  16. SOLONDO [Concomitant]
     Active Substance: PREDNISOLONE
     Dosage: 10 MILLIGRAM, QD
     Route: 048
     Dates: start: 20210310, end: 20210312

REACTIONS (1)
  - Hepatic encephalopathy [Recovered/Resolved]

NARRATIVE: CASE EVENT DATE: 20210308
